FAERS Safety Report 9154821 (Version 2)
Quarter: 2013Q1

REPORT INFORMATION
  Report Type: Spontaneous
  Country: US (occurrence: None)
  Receive Date: 20130205
  Receipt Date: 20130225
  Transmission Date: 20140127
  Serious: Yes (Other)
  Sender: FDA-Public Use
  Company Number: 2013P1001582

PATIENT
  Age: 58 Year
  Sex: Female

DRUGS (2)
  1. INFUMORPH [Suspect]
     Indication: PAIN
  2. INFUMORPH [Suspect]
     Indication: POST LAMINECTOMY SYNDROME

REACTIONS (2)
  - Implant site pain [None]
  - Device deployment issue [None]
